FAERS Safety Report 7212373-5 (Version None)
Quarter: 2011Q1

REPORT INFORMATION
  Report Type: 
  Country: None (occurrence: None)
  Receive Date: 20110106
  Receipt Date: 20101227
  Transmission Date: 20110831
  Serious: Yes (Other)
  Sender: FDA-Public Use
  Company Number: JP-BRISTOL-MYERS SQUIBB COMPANY-15470578

PATIENT
  Age: 71 Year
  Sex: Male

DRUGS (2)
  1. PARAPLATIN [Suspect]
     Indication: NEUROENDOCRINE CARCINOMA
     Route: 041
     Dates: start: 20091015
  2. TAXOL [Suspect]
     Indication: NEUROENDOCRINE CARCINOMA
     Route: 041
     Dates: start: 20091015

REACTIONS (2)
  - HEPATIC ENZYME INCREASED [None]
  - PORTAL VENOUS GAS [None]
